FAERS Safety Report 8697993 (Version 2)
Quarter: 2013Q4

REPORT INFORMATION
  Report Type: Spontaneous
  Country: US (occurrence: US)
  Receive Date: 20120801
  Receipt Date: 20131106
  Transmission Date: 20140711
  Serious: Yes (Disabling, Other)
  Sender: FDA-Public Use
  Company Number: US-MSD-1207USA010709

PATIENT
  Age: 63 Year
  Sex: Female

DRUGS (8)
  1. ZOCOR [Suspect]
     Dosage: 20 MG, QD
     Route: 048
  2. LETROZOLE [Suspect]
     Dosage: 2.5 MG, QD
     Route: 048
  3. CALCICHEW D3 [Concomitant]
     Dosage: 1 DF, BID
     Route: 048
  4. LANSOPRAZOLE [Concomitant]
     Dosage: 15 MG, UNK
     Route: 048
  5. ACETAMINOPHEN [Concomitant]
     Dosage: 1 G, UNK
     Route: 048
  6. SERTRALINE HYDROCHLORIDE [Concomitant]
     Dosage: 100 MG, UNK
     Route: 048
  7. ASPIRIN [Concomitant]
     Dosage: 75 MG, UNK
     Route: 048
  8. BISOPROLOL [Concomitant]
     Dosage: 2.5 MG, UNK
     Route: 048

REACTIONS (4)
  - Mobility decreased [Unknown]
  - Myalgia [Unknown]
  - Arthralgia [Unknown]
  - Blood creatine phosphokinase increased [Unknown]
